FAERS Safety Report 5945201-6 (Version None)
Quarter: 2008Q4

REPORT INFORMATION
  Report Type: 
  Country: None (occurrence: None)
  Receive Date: 20081107
  Receipt Date: 20081030
  Transmission Date: 20090506
  Serious: Yes (Hospitalization)
  Sender: FDA-Public Use
  Company Number: B0545333A

PATIENT
  Age: 80 Year
  Sex: Male

DRUGS (9)
  1. ZINACEF [Suspect]
     Dosage: 1.5G THREE TIMES PER DAY
     Route: 042
     Dates: start: 20080804, end: 20080916
  2. TAVANIC [Concomitant]
     Dosage: 500MG PER DAY
     Route: 048
     Dates: start: 20080804
  3. ENOXAPARIN SODIUM [Concomitant]
     Indication: THROMBOSIS PROPHYLAXIS
     Dosage: 40MG PER DAY
     Route: 058
     Dates: start: 20080804, end: 20080916
  4. NEXIUM [Concomitant]
     Dosage: 40MG PER DAY
     Route: 048
  5. TRAMADOL HCL [Concomitant]
     Indication: PAIN
     Route: 048
  6. MOVICOL [Concomitant]
     Indication: CONSTIPATION
     Route: 048
  7. LAXOBERON [Concomitant]
     Indication: CONSTIPATION
     Route: 065
  8. ACETAMINOPHEN [Concomitant]
     Indication: PAIN
     Dosage: 1G THREE TIMES PER DAY
     Route: 048
  9. XATRAL [Concomitant]
     Dosage: 10MG PER DAY
     Route: 048
     Dates: start: 20080828

REACTIONS (4)
  - AGRANULOCYTOSIS [None]
  - C-REACTIVE PROTEIN INCREASED [None]
  - LEUKOPENIA [None]
  - NEUTROPHIL COUNT DECREASED [None]
